FAERS Safety Report 5018510-5 (Version None)
Quarter: 2006Q2

REPORT INFORMATION
  Report Type: 
  Country: None (occurrence: None)
  Receive Date: 20060530
  Receipt Date: 20060520
  Transmission Date: 20061013
  Serious: Yes (Disabling)
  Sender: FDA-Public Use
  Company Number: 217588

PATIENT
  Sex: Female

DRUGS (1)
  1. XOLAIR [Suspect]
     Indication: ASTHMA
     Dates: start: 20050720

REACTIONS (12)
  - DIARRHOEA [None]
  - FEELING HOT [None]
  - HEADACHE [None]
  - INAPPROPRIATE SCHEDULE OF DRUG ADMINISTRATION [None]
  - MUSCLE SPASMS [None]
  - NAUSEA [None]
  - NECK PAIN [None]
  - PAIN [None]
  - PHARYNGOLARYNGEAL PAIN [None]
  - POST PROCEDURAL COMPLICATION [None]
  - RHINORRHOEA [None]
  - SHOULDER PAIN [None]
